FAERS Safety Report 12198225 (Version 3)
Quarter: 2017Q2

REPORT INFORMATION
  Report Type: Spontaneous
  Country: US (occurrence: US)
  Receive Date: 20160322
  Receipt Date: 20170422
  Transmission Date: 20170830
  Serious: No
  Sender: FDA-Public Use
  Company Number: US-JNJFOC-20151101467

PATIENT
  Age: 20 Year
  Sex: Male

DRUGS (1)
  1. RISPERDAL [Suspect]
     Active Substance: RISPERIDONE
     Indication: SCHIZOPHRENIA
     Route: 048
     Dates: start: 20071029, end: 20080728

REACTIONS (5)
  - Galactorrhoea [Recovered/Resolved]
  - Obesity [Unknown]
  - Gynaecomastia [Unknown]
  - Hypogonadism [Unknown]
  - Emotional disorder [Unknown]

NARRATIVE: CASE EVENT DATE: 20111123
